FAERS Safety Report 5448692-2 (Version None)
Quarter: 2007Q3

REPORT INFORMATION
  Report Type: 
  Country: None (occurrence: None)
  Receive Date: 20070911
  Receipt Date: 20070904
  Transmission Date: 20080115
  Serious: Yes (Other)
  Sender: FDA-Public Use
  Company Number: A0678428A

PATIENT
  Age: 40 Year
  Sex: Female

DRUGS (2)
  1. PAXIL CR [Suspect]
     Indication: DEPRESSION
     Dosage: 12MG PER DAY
     Route: 048
     Dates: end: 20070815
  2. SYNTHROID [Concomitant]
     Route: 048

REACTIONS (7)
  - ABDOMINAL DISTENSION [None]
  - AGITATION [None]
  - DIZZINESS [None]
  - FALL [None]
  - PARAESTHESIA [None]
  - PRURITUS [None]
  - SUICIDAL IDEATION [None]
